FAERS Safety Report 7952444-9 (Version None)
Quarter: 2011Q4

REPORT INFORMATION
  Report Type: 
  Country: None (occurrence: None)
  Receive Date: 20111201
  Receipt Date: 20111122
  Transmission Date: 20120403
  Serious: Yes (Other)
  Sender: FDA-Public Use
  Company Number: US-GLAXOSMITHKLINE-B0766139A

PATIENT
  Age: 11 Year
  Sex: Female

DRUGS (4)
  1. ONDANSETRON [Suspect]
     Indication: TYMPANOPLASTY
  2. DEXAMETHASONE [Suspect]
  3. FENTANYL [Suspect]
  4. SEVOFLURANE [Suspect]

REACTIONS (7)
  - EXTRAPYRAMIDAL DISORDER [None]
  - BLEPHAROSPASM [None]
  - DYSKINESIA [None]
  - TREMOR [None]
  - EYE MOVEMENT DISORDER [None]
  - DRUG INTERACTION [None]
  - DYSTONIA [None]
